FAERS Safety Report 23711042 (Version 1)
Quarter: 2024Q2

REPORT INFORMATION
  Report Type: Spontaneous
  Country: GB (occurrence: GB)
  Receive Date: 20240405
  Receipt Date: 20240405
  Transmission Date: 20240716
  Serious: Yes (Other)
  Sender: FDA-Public Use
  Company Number: None

PATIENT
  Age: 62 Year
  Sex: Female
  Weight: 5 kg

DRUGS (2)
  1. MYFENAX [Suspect]
     Active Substance: MYCOPHENOLATE MOFETIL
     Indication: Autoimmune hepatitis
     Route: 065
     Dates: start: 20240311, end: 20240326
  2. PREDNISOLONE [Concomitant]
     Active Substance: PREDNISOLONE
     Dates: start: 20230404

REACTIONS (6)
  - Mental impairment [Recovering/Resolving]
  - Arthralgia [Not Recovered/Not Resolved]
  - Restlessness [Not Recovered/Not Resolved]
  - Oral herpes [Recovering/Resolving]
  - Tension headache [Recovering/Resolving]
  - Oral pain [Not Recovered/Not Resolved]

NARRATIVE: CASE EVENT DATE: 20240317
